FAERS Safety Report 7045360-0 (Version None)
Quarter: 2010Q4

REPORT INFORMATION
  Report Type: 
  Country: None (occurrence: None)
  Receive Date: 20101008
  Receipt Date: 20101008
  Transmission Date: 20110411
  Serious: Yes (Other)
  Sender: FDA-Public Use
  Company Number: None

PATIENT
  Age: 64 Year
  Sex: Female
  Weight: 121.1104 kg

DRUGS (1)
  1. NUCYNTA [Suspect]
     Indication: ARTHRALGIA
     Dosage: 50 MG EVERY 4 HRS. BY MOUTH
     Route: 048
     Dates: start: 20100926, end: 20100927

REACTIONS (3)
  - BACK PAIN [None]
  - MYALGIA [None]
  - PAIN [None]
